FAERS Safety Report 4830357-9 (Version None)
Quarter: 2005Q4

REPORT INFORMATION
  Report Type: 
  Country: None (occurrence: None)
  Receive Date: 20051117
  Receipt Date: 20050621
  Transmission Date: 20060501
  Serious: Yes (Death, Other)
  Sender: FDA-Public Use
  Company Number: PHEH2005US07058

PATIENT
  Age: 66 Year
  Sex: Female

DRUGS (9)
  1. ZOMETA [Suspect]
     Indication: BREAST CANCER METASTATIC
     Dosage: 4 MG EVERY 3-4 WEEKS
     Dates: start: 20011208, end: 20041012
  2. ZOMETA [Suspect]
     Dates: end: 20050428
  3. HERCEPTIN [Concomitant]
  4. XELODA [Concomitant]
     Dosage: ^INTERMITTENT^
     Dates: end: 20050929
  5. FLUCONAZOLE [Concomitant]
  6. NEURONTIN [Concomitant]
  7. TYLENOL (CAPLET) [Concomitant]
  8. ATENOLOL [Concomitant]
  9. DIGITEK [Concomitant]

REACTIONS (15)
  - BONE DISORDER [None]
  - BREAST CANCER METASTATIC [None]
  - DENTAL TREATMENT [None]
  - DRY MOUTH [None]
  - ENANTHEMA [None]
  - GINGIVAL BLEEDING [None]
  - IMPAIRED HEALING [None]
  - MOUTH ULCERATION [None]
  - NEUROPATHY PERIPHERAL [None]
  - OSTEONECROSIS [None]
  - PAIN [None]
  - PALATAL DISORDER [None]
  - SINUS DISORDER [None]
  - SOFT TISSUE INFLAMMATION [None]
  - VASCULITIS [None]
